FAERS Safety Report 17356097 (Version 5)
Quarter: 2021Q3

REPORT INFORMATION
  Report Type: Spontaneous
  Country: US (occurrence: US)
  Receive Date: 20200131
  Receipt Date: 20210905
  Transmission Date: 20211014
  Serious: Yes (Death, Congenital Anomaly)
  Sender: FDA-Public Use
  Company Number: US-BIOGEN-2020BI00833256

PATIENT

DRUGS (3)
  1. TYSABRI [Suspect]
     Active Substance: NATALIZUMAB
     Route: 064
     Dates: start: 20200123
  2. TYSABRI [Suspect]
     Active Substance: NATALIZUMAB
     Indication: MATERNAL EXPOSURE TIMING UNSPECIFIED
     Route: 064
     Dates: start: 20070802, end: 20120522
  3. TYSABRI [Suspect]
     Active Substance: NATALIZUMAB
     Route: 064
     Dates: start: 20120818, end: 20190815

REACTIONS (4)
  - Foetal exposure during pregnancy [Recovered/Resolved]
  - Trisomy 18 [Fatal]
  - Gastroschisis [Fatal]
  - Heart disease congenital [Fatal]

NARRATIVE: CASE EVENT DATE: 20200310
